FAERS Safety Report 22765674 (Version 47)
Quarter: 2024Q4

REPORT INFORMATION
  Report Type: Report from Study
  Country: AT (occurrence: AT)
  Receive Date: 20230731
  Receipt Date: 20241001
  Transmission Date: 20250115
  Serious: Yes (Death, Life-Threatening, Hospitalization, Other)
  Sender: ABBVIE
  Company Number: AT-ABBVIE-5340951

PATIENT
  Age: 67 Year
  Sex: Female
  Weight: 64 kg

DRUGS (110)
  1. VENETOCLAX [Suspect]
     Active Substance: VENETOCLAX
     Indication: Acute myeloid leukaemia
     Dosage: FREQUENCY TEXT: RAMP-UP PHASE
     Route: 048
     Dates: start: 20230713, end: 20230713
  2. VENETOCLAX [Suspect]
     Active Substance: VENETOCLAX
     Indication: Acute myeloid leukaemia
     Dosage: DURATION TEXT: TITRATION
     Route: 048
     Dates: start: 20230712, end: 20230712
  3. VENETOCLAX [Suspect]
     Active Substance: VENETOCLAX
     Indication: Acute myeloid leukaemia
     Dosage: FREQUENCY TEXT: TITRATION
     Route: 048
     Dates: start: 20230711, end: 20230711
  4. VENETOCLAX [Suspect]
     Active Substance: VENETOCLAX
     Indication: Acute myeloid leukaemia
     Dosage: HEMATOLOGIC AE/SAE
     Route: 048
     Dates: start: 20230815, end: 20230830
  5. VENETOCLAX [Suspect]
     Active Substance: VENETOCLAX
     Indication: Acute myeloid leukaemia
     Dosage: FREQUENCY TEXT: STANDARD DOSAGE
     Route: 048
     Dates: start: 20230714, end: 20230720
  6. VENETOCLAX [Suspect]
     Active Substance: VENETOCLAX
     Indication: Acute myeloid leukaemia
     Dosage: FREQUENCY TEXT: STANDARD DOSE
     Route: 048
     Dates: start: 20230921, end: 20230928
  7. VENETOCLAX [Suspect]
     Active Substance: VENETOCLAX
     Indication: Acute myeloid leukaemia
     Dosage: FREQUENCY TEXT: HEMATOLOGIC AE/SAE
     Route: 048
     Dates: start: 20240718, end: 20240724
  8. VENETOCLAX [Suspect]
     Active Substance: VENETOCLAX
     Indication: Acute myeloid leukaemia
     Dosage: PERFORMANCE STATUS, FREQUENCY TEXT: OTHER
     Route: 048
     Dates: start: 20240103, end: 20240109
  9. VENETOCLAX [Suspect]
     Active Substance: VENETOCLAX
     Indication: Acute myeloid leukaemia
     Dosage: FREQUENCY TEXT: OTHER
     Route: 048
     Dates: start: 20240228, end: 20240305
  10. VENETOCLAX [Suspect]
     Active Substance: VENETOCLAX
     Indication: Acute myeloid leukaemia
     Dosage: FREQUENCY TEXT: CONCOMITANT DISEASE
     Route: 048
     Dates: start: 20240131, end: 20240206
  11. VENETOCLAX [Suspect]
     Active Substance: VENETOCLAX
     Indication: Acute myeloid leukaemia
     Dosage: FREQUENCY TEXT: CONCOMITANT DISEASE
     Route: 048
     Dates: start: 20240403, end: 20240409
  12. VENETOCLAX [Suspect]
     Active Substance: VENETOCLAX
     Indication: Acute myeloid leukaemia
     Dosage: FREQUENCY TEXT: CONCOMITANT DISEASE
     Route: 048
     Dates: start: 20240430, end: 20240506
  13. VENETOCLAX [Suspect]
     Active Substance: VENETOCLAX
     Indication: Acute myeloid leukaemia
     Route: 048
     Dates: start: 20240606, end: 20240612
  14. VENETOCLAX [Suspect]
     Active Substance: VENETOCLAX
     Indication: Acute myeloid leukaemia
     Route: 048
     Dates: start: 20231020, end: 20231026
  15. VENETOCLAX [Suspect]
     Active Substance: VENETOCLAX
     Indication: Acute myeloid leukaemia
     Dosage: FREQUENCY TEXT: OTHER 0MG
     Route: 048
     Dates: start: 20240705, end: 20240717
  16. VENETOCLAX [Suspect]
     Active Substance: VENETOCLAX
     Indication: Acute myeloid leukaemia
     Dosage: 0MG, STANDARD DOSING/FREQUENCY TEXT: DUE TO CONCOMITANT DISEASE
     Route: 048
     Dates: start: 20240725, end: 20240920
  17. VENETOCLAX [Suspect]
     Active Substance: VENETOCLAX
     Indication: Acute myeloid leukaemia
     Dosage: DOSE : 0 MG
     Route: 048
     Dates: start: 20230721, end: 20230814
  18. VENETOCLAX [Suspect]
     Active Substance: VENETOCLAX
     Indication: Acute myeloid leukaemia
     Dosage: DOSE: 0 MG
     Route: 048
     Dates: start: 20230831, end: 20230920
  19. VENETOCLAX [Suspect]
     Active Substance: VENETOCLAX
     Indication: Acute myeloid leukaemia
     Dosage: FREQUENCY TEXT: OTHER/DOSE :0 MG
     Route: 048
     Dates: start: 20230929, end: 20231019
  20. VENETOCLAX [Suspect]
     Active Substance: VENETOCLAX
     Indication: Acute myeloid leukaemia
     Dosage: 0MG
     Route: 048
     Dates: start: 20231027, end: 20240102
  21. VENETOCLAX [Suspect]
     Active Substance: VENETOCLAX
     Indication: Acute myeloid leukaemia
     Dosage: 0MG, FREQUENCY TEXT: HEMATOLOGIC AE/SAE
     Route: 048
     Dates: start: 20240306, end: 20240402
  22. VENETOCLAX [Suspect]
     Active Substance: VENETOCLAX
     Indication: Acute myeloid leukaemia
     Dosage: FREQUENCY TEXT :CONCOMITANT DISEASE, 0MG
     Route: 048
     Dates: start: 20240507, end: 20240605
  23. VENETOCLAX [Suspect]
     Active Substance: VENETOCLAX
     Indication: Acute myeloid leukaemia
     Dosage: FREQUENCY TEXT :CONCOMITANT DISEASE, 0MG
     Route: 048
     Dates: start: 20240613, end: 20240704
  24. FUROSEMIDE [Concomitant]
     Active Substance: FUROSEMIDE
     Indication: Product used for unknown indication
     Route: 042
     Dates: start: 20240917, end: 20240920
  25. AZACITIDINE [Concomitant]
     Active Substance: AZACITIDINE
     Indication: Acute myeloid leukaemia
     Dates: start: 20240430, end: 20240506
  26. AZACITIDINE [Concomitant]
     Active Substance: AZACITIDINE
     Indication: Acute myeloid leukaemia
     Dosage: FREQUENCY TEXT: DUE TO CONCOMITANT DISEASE
     Dates: start: 20240228, end: 20240305
  27. AZACITIDINE [Concomitant]
     Active Substance: AZACITIDINE
     Indication: Acute myeloid leukaemia
     Dosage: 139.94 MG; STANDARD DOSAGE
     Dates: start: 20230711, end: 20230717
  28. AZACITIDINE [Concomitant]
     Active Substance: AZACITIDINE
     Indication: Acute myeloid leukaemia
     Dosage: FREQUENCY TEXT: CONCOMITANT DISEASE
     Dates: start: 20240131, end: 20240206
  29. AZACITIDINE [Concomitant]
     Active Substance: AZACITIDINE
     Indication: Acute myeloid leukaemia
     Dosage: 138.05 MG; HEMATOLOGIC AE/SAE
     Dates: start: 20230915, end: 20230921
  30. AZACITIDINE [Concomitant]
     Active Substance: AZACITIDINE
     Indication: Acute myeloid leukaemia
     Dosage: HEMATOLOGIC AE/SAE
     Dates: start: 20231020, end: 20231026
  31. AZACITIDINE [Concomitant]
     Active Substance: AZACITIDINE
     Indication: Acute myeloid leukaemia
     Dates: start: 20240718
  32. AZACITIDINE [Concomitant]
     Active Substance: AZACITIDINE
     Indication: Acute myeloid leukaemia
     Dates: start: 20240606, end: 20240612
  33. AZACITIDINE [Concomitant]
     Active Substance: AZACITIDINE
     Indication: Acute myeloid leukaemia
     Dosage: 138.05 MG; HEMATOLOGIC AE/SAE
     Dates: start: 20230814, end: 20230820
  34. AZACITIDINE [Concomitant]
     Active Substance: AZACITIDINE
     Indication: Acute myeloid leukaemia
     Dosage: FREQUENCY TEXT: CONCOMITANT DISEASE
     Dates: start: 20240103, end: 20240109
  35. AZACITIDINE [Concomitant]
     Active Substance: AZACITIDINE
     Indication: Acute myeloid leukaemia
     Dates: start: 20240403, end: 20240409
  36. COMBIVENT [Concomitant]
     Active Substance: ALBUTEROL SULFATE\IPRATROPIUM BROMIDE
     Indication: Product used for unknown indication
     Dosage: COMBIVENT INHAL.
     Route: 055
     Dates: start: 20240917
  37. Reparil [Concomitant]
     Indication: Product used for unknown indication
     Dosage: FREQUENCY TEXT: 1-0-0 ?DRAG
     Route: 048
     Dates: start: 20230725
  38. LOVENOX [Concomitant]
     Active Substance: ENOXAPARIN SODIUM
     Indication: Product used for unknown indication
     Route: 058
     Dates: start: 20231006, end: 20231011
  39. LOVENOX [Concomitant]
     Active Substance: ENOXAPARIN SODIUM
     Indication: Product used for unknown indication
     Route: 058
     Dates: start: 20231023, end: 20231025
  40. LIORESAL [Concomitant]
     Active Substance: BACLOFEN
     Indication: Product used for unknown indication
     Route: 048
     Dates: start: 20040201, end: 20230718
  41. HYDROXYUREA [Concomitant]
     Active Substance: HYDROXYUREA
     Indication: Product used for unknown indication
     Dosage: FREQUENCY TEXT: EVERY OTHER DAY
     Route: 048
     Dates: start: 20230626, end: 20230708
  42. MAGNESIUM CARBONATE\MAGNESIUM OXIDE [Concomitant]
     Active Substance: MAGNESIUM CARBONATE\MAGNESIUM OXIDE
     Indication: Product used for unknown indication
     Route: 048
     Dates: start: 20231204
  43. CASPOFUNGIN [Concomitant]
     Active Substance: CASPOFUNGIN
     Indication: Mucosal infection
     Dosage: FREQUENCY TEXT: 1-0-0?HIK
     Route: 042
     Dates: start: 20231130, end: 20231130
  44. CASPOFUNGIN [Concomitant]
     Active Substance: CASPOFUNGIN
     Indication: Mucosal infection
     Dosage: FREQUENCY TEXT: 1-0-0?HIK
     Route: 042
     Dates: start: 20231201, end: 20231215
  45. BISOPROLOL FUMARATE [Concomitant]
     Active Substance: BISOPROLOL FUMARATE
     Indication: Product used for unknown indication
     Route: 048
     Dates: start: 20200101, end: 20230729
  46. BISOPROLOL FUMARATE [Concomitant]
     Active Substance: BISOPROLOL FUMARATE
     Indication: Product used for unknown indication
     Dosage: LAST ADMIN DATE: 2023, FREQUENCY TEXT: 1-0-1, 1.25MG
     Route: 048
     Dates: start: 20231128
  47. BISOPROLOL FUMARATE [Concomitant]
     Active Substance: BISOPROLOL FUMARATE
     Indication: Product used for unknown indication
     Dosage: LAST ADMIN DATE: 2023
     Route: 048
     Dates: start: 20240916, end: 20240920
  48. BISOPROLOL FUMARATE [Concomitant]
     Active Substance: BISOPROLOL FUMARATE
     Indication: Product used for unknown indication
     Dosage: FREQUENCY TEXT: 1-0-1, 2.5MG
     Route: 048
     Dates: start: 20200101, end: 20230729
  49. BISOPROLOL FUMARATE [Concomitant]
     Active Substance: BISOPROLOL FUMARATE
     Indication: Product used for unknown indication
     Dates: end: 20230831
  50. BISOPROLOL FUMARATE [Concomitant]
     Active Substance: BISOPROLOL FUMARATE
     Indication: Product used for unknown indication
     Dosage: FIRST ADMIN DATE : 2023, FREQUENCY TEXT: 1-0-1, 1.25MG
     Route: 048
     Dates: end: 20230831
  51. Kalioral [Concomitant]
     Indication: Product used for unknown indication
     Dosage: FREQUENCY TEXT: DAILY
     Route: 048
     Dates: start: 20230715, end: 20230721
  52. Kalioral [Concomitant]
     Indication: Product used for unknown indication
     Dosage: FRE POWDER?FIRST ADMIN DATE: 2023
     Route: 048
     Dates: end: 20230831
  53. ATORVASTATIN [Concomitant]
     Active Substance: ATORVASTATIN
     Indication: Product used for unknown indication
     Dosage: FREQUENCY TEXT: 0-0-1-0?START DATE TEXT: UNKNOWN
     Route: 048
     Dates: end: 20240920
  54. ATORVASTATIN [Concomitant]
     Active Substance: ATORVASTATIN
     Indication: Product used for unknown indication
     Dosage: FREQUENCY TEXT: 0-0-1-0?START DATE TEXT: UNKNOWN
     Route: 048
     Dates: start: 20240916, end: 20240918
  55. RASBURICASE [Concomitant]
     Active Substance: RASBURICASE
     Indication: Product used for unknown indication
     Dosage: FREQUENCY TEXT: DAILY
     Dates: start: 20230711, end: 20230711
  56. MYCOSTATIN [Concomitant]
     Active Substance: NYSTATIN
     Indication: Product used for unknown indication
     Route: 048
     Dates: start: 20231006, end: 20240920
  57. MYCOSTATIN [Concomitant]
     Active Substance: NYSTATIN
     Indication: Product used for unknown indication
     Dosage: FREQUENCY TEXT: 5-5-5-5
     Route: 048
  58. GRANULOCYTE COLONY-STIMULATING FACTOR NOS [Concomitant]
     Active Substance: GRANULOCYTE COLONY-STIMULATING FACTOR NOS
     Indication: Product used for unknown indication
     Dosage: TIME INTERVAL: AS NECESSARY
     Dates: start: 20230728, end: 20231124
  59. GRANULOCYTE COLONY-STIMULATING FACTOR NOS [Concomitant]
     Active Substance: GRANULOCYTE COLONY-STIMULATING FACTOR NOS
     Indication: Product used for unknown indication
     Dosage: TIME INTERVAL: AS NECESSARY: FREQUENCY TEXT: NOT AS REQUIRED?EVERY OTHER DAY
     Dates: start: 20231204, end: 20240109
  60. GRANULOCYTE COLONY-STIMULATING FACTOR NOS [Concomitant]
     Active Substance: GRANULOCYTE COLONY-STIMULATING FACTOR NOS
     Indication: Product used for unknown indication
     Dosage: TIME INTERVAL: AS NECESSARY: FREQUENCY TEXT: AS REQUIRED, LAST ADMIN DATE: 2024
     Dates: start: 20240110, end: 20240605
  61. GRANULOCYTE COLONY-STIMULATING FACTOR NOS [Concomitant]
     Active Substance: GRANULOCYTE COLONY-STIMULATING FACTOR NOS
     Indication: Product used for unknown indication
     Dates: start: 20240704, end: 20240718
  62. LEVOFLOXACIN [Concomitant]
     Active Substance: LEVOFLOXACIN
     Indication: Product used for unknown indication
     Route: 048
     Dates: start: 20231218, end: 20240109
  63. LEVOFLOXACIN [Concomitant]
     Active Substance: LEVOFLOXACIN
     Indication: Product used for unknown indication
     Route: 048
     Dates: start: 20240103, end: 20240920
  64. PLATELETS [Concomitant]
     Active Substance: HUMAN PLATELET, ALLOGENIC
     Indication: Product used for unknown indication
     Dosage: TIME INTERVAL: AS NECESSARY: CONCENTRATE?AS REQUIRED
     Dates: start: 20231129, end: 20231222
  65. CEPHALEXIN [Concomitant]
     Active Substance: CEPHALEXIN
     Indication: Product used for unknown indication
     Route: 048
     Dates: start: 20240206, end: 20240211
  66. ESOMEPRAZOLE [Concomitant]
     Active Substance: ESOMEPRAZOLE
     Indication: Prophylaxis
     Dosage: FREQUENCY TEXT: 1-0-0
     Route: 048
     Dates: start: 20240916, end: 20240920
  67. SULFAMETROLE\TRIMETHOPRIM [Concomitant]
     Active Substance: SULFAMETROLE\TRIMETHOPRIM
     Indication: Product used for unknown indication
     Route: 048
     Dates: start: 20240918
  68. SULFAMETROLE\TRIMETHOPRIM [Concomitant]
     Active Substance: SULFAMETROLE\TRIMETHOPRIM
     Indication: Product used for unknown indication
     Route: 048
     Dates: start: 20240916
  69. SULFAMETROLE\TRIMETHOPRIM [Concomitant]
     Active Substance: SULFAMETROLE\TRIMETHOPRIM
     Indication: Product used for unknown indication
     Route: 048
     Dates: start: 20240920
  70. SULFAMETROLE\TRIMETHOPRIM [Concomitant]
     Active Substance: SULFAMETROLE\TRIMETHOPRIM
     Indication: Product used for unknown indication
     Dosage: FREQUENCY TEXT: EVERY 3RD DAY (MON/WED/FR)
     Route: 048
     Dates: start: 20231020
  71. SULFAMETROLE\TRIMETHOPRIM [Concomitant]
     Active Substance: SULFAMETROLE\TRIMETHOPRIM
     Indication: Product used for unknown indication
     Route: 048
     Dates: start: 20240916
  72. SULFAMETROLE\TRIMETHOPRIM [Concomitant]
     Active Substance: SULFAMETROLE\TRIMETHOPRIM
     Indication: Product used for unknown indication
     Route: 048
     Dates: start: 20240920
  73. SULFAMETROLE\TRIMETHOPRIM [Concomitant]
     Active Substance: SULFAMETROLE\TRIMETHOPRIM
     Indication: Product used for unknown indication
     Route: 048
     Dates: start: 20240918
  74. HUMAN RED BLOOD CELL [Concomitant]
     Active Substance: HUMAN RED BLOOD CELL
     Indication: Product used for unknown indication
     Dosage: TIME INTERVAL: AS NECESSARY: CONCENTRATE, FREQUENCY TEXT: AS NEEDED
     Route: 065
     Dates: start: 20230715, end: 20230715
  75. HUMAN RED BLOOD CELL [Concomitant]
     Active Substance: HUMAN RED BLOOD CELL
     Indication: Product used for unknown indication
     Dosage: TIME INTERVAL: AS NECESSARY: CONCENTRATE,  FREQUENCY TEXT: AS NEEDED
     Route: 065
     Dates: start: 20230725, end: 20231222
  76. HUMAN RED BLOOD CELL [Concomitant]
     Active Substance: HUMAN RED BLOOD CELL
     Indication: Product used for unknown indication
     Dosage: CONCENTRATE,  FREQUENCY TEXT: AS NEEDED?DAILY
     Dates: start: 20240704
  77. LINEZOLID [Concomitant]
     Active Substance: LINEZOLID
     Indication: Product used for unknown indication
     Dosage: 2MG/ML 300ML/FREQUENCY TEXT: 1-0-0-0
     Route: 042
     Dates: start: 20240907, end: 20240913
  78. LINEZOLID [Concomitant]
     Active Substance: LINEZOLID
     Indication: Product used for unknown indication
     Dosage: 2MG/ML 300ML, FREQUENCY TEXT: DAILY?FREQUENCY TEXT: 1-0-1
     Route: 042
     Dates: start: 20230905, end: 20230913
  79. ASPIRIN [Concomitant]
     Active Substance: ASPIRIN
     Indication: Product used for unknown indication
     Dosage: FREQUENCY TEXT: 0-1-0-0
     Route: 048
     Dates: start: 20200101, end: 20230727
  80. ASPIRIN [Concomitant]
     Active Substance: ASPIRIN
     Indication: Product used for unknown indication
     Dosage: FREQUENCY TEXT: 0-1-0-0?LAST ADMIN DATE: 2023
     Route: 048
     Dates: start: 20230906
  81. ASPIRIN [Concomitant]
     Active Substance: ASPIRIN
     Indication: Product used for unknown indication
     Dosage: FREQUENCY TEXT: 0-1-0?FIRST ADMIN DATE: 2023
     Route: 048
     Dates: end: 20231130
  82. ASPIRIN [Concomitant]
     Active Substance: ASPIRIN
     Indication: Product used for unknown indication
     Dosage: FREQUENCY TEXT: 0-1-0
     Route: 048
  83. IBANDRONIC ACID [Concomitant]
     Active Substance: IBANDRONIC ACID
     Indication: Product used for unknown indication
     Dosage: START DATE TEXT: UNKNOWN
     Route: 030
     Dates: end: 20240920
  84. Selexid [Concomitant]
     Indication: Product used for unknown indication
     Route: 048
     Dates: start: 20230724, end: 20230801
  85. KONAKION [Concomitant]
     Active Substance: PHYTONADIONE
     Indication: Product used for unknown indication
     Route: 042
     Dates: start: 20230731, end: 20230801
  86. ONDANSETRON [Concomitant]
     Active Substance: ONDANSETRON
     Indication: Product used for unknown indication
     Dosage: AS REQUIRED
     Route: 065
     Dates: start: 20230814, end: 20230820
  87. ONDANSETRON [Concomitant]
     Active Substance: ONDANSETRON
     Indication: Product used for unknown indication
     Dosage: AS REQUIRED
     Route: 065
     Dates: start: 20230915, end: 20230921
  88. ONDANSETRON [Concomitant]
     Active Substance: ONDANSETRON
     Indication: Product used for unknown indication
     Dosage: AS REQUIRED
     Route: 065
     Dates: start: 20231020, end: 20231026
  89. ONDANSETRON [Concomitant]
     Active Substance: ONDANSETRON
     Indication: Product used for unknown indication
     Dosage: AS REQUIRED
     Route: 065
     Dates: start: 20231201, end: 20231206
  90. ONDANSETRON [Concomitant]
     Active Substance: ONDANSETRON
     Indication: Product used for unknown indication
     Dosage: AS REQUIRED
     Route: 065
     Dates: start: 20240103, end: 20240109
  91. ONDANSETRON [Concomitant]
     Active Substance: ONDANSETRON
     Indication: Product used for unknown indication
     Dosage: AS REQUIRED
     Route: 065
     Dates: start: 20240131, end: 20240206
  92. ONDANSETRON [Concomitant]
     Active Substance: ONDANSETRON
     Indication: Product used for unknown indication
     Dosage: AS REQUIRED
     Route: 065
     Dates: start: 20240228, end: 20240305
  93. ONDANSETRON [Concomitant]
     Active Substance: ONDANSETRON
     Indication: Product used for unknown indication
     Dosage: AS REQUIRED
     Route: 065
     Dates: start: 20240403, end: 20240409
  94. ONDANSETRON [Concomitant]
     Active Substance: ONDANSETRON
     Indication: Product used for unknown indication
     Dosage: AS REQUIRED
     Route: 065
     Dates: start: 20240430, end: 20240506
  95. ONDANSETRON [Concomitant]
     Active Substance: ONDANSETRON
     Indication: Product used for unknown indication
     Dosage: AS REQUIRED
     Route: 065
     Dates: start: 20240606, end: 20240612
  96. ONDANSETRON [Concomitant]
     Active Substance: ONDANSETRON
     Indication: Product used for unknown indication
     Dosage: FIRST AND LAST ADMIN DATE: APR 2024
     Dates: start: 20240403
  97. AVELOX [Concomitant]
     Active Substance: MOXIFLOXACIN HYDROCHLORIDE
     Indication: Product used for unknown indication
     Dosage: FREQUENCY TEXT: DAILY, FREQUENCY TEXT: 1-0-0-0,
     Route: 042
     Dates: start: 20230905, end: 20230906
  98. ZOVIRAX [Concomitant]
     Active Substance: ACYCLOVIR
     Indication: Product used for unknown indication
     Dosage: FREQUENCY TEXT:  0-2-2-0
     Route: 042
     Dates: start: 20230905, end: 20230913
  99. ACYCLOVIR [Concomitant]
     Active Substance: ACYCLOVIR
     Indication: Oral herpes
     Dosage: FREQUENCY TEXT: 1-0-0-0
     Route: 048
     Dates: start: 20230914
  100. ACYCLOVIR [Concomitant]
     Active Substance: ACYCLOVIR
     Indication: Oral herpes
     Route: 062
     Dates: start: 20230909, end: 20240920
  101. MOXIFLOXACIN [Concomitant]
     Active Substance: MOXIFLOXACIN
     Indication: Product used for unknown indication
     Dosage: FREQUENCY TEXT: 0-1-0-0
     Route: 042
     Dates: start: 20230907, end: 20230915
  102. OXYGEROLAN [Concomitant]
     Indication: Product used for unknown indication
     Route: 048
     Dates: start: 20240916, end: 20240919
  103. OXYGEROLAN [Concomitant]
     Indication: Product used for unknown indication
     Dosage: FREQUENCY TEXT: DAILY
     Route: 048
     Dates: start: 20240903
  104. LINEZOLID HCS [Concomitant]
     Indication: Product used for unknown indication
     Route: 042
     Dates: start: 20230905, end: 20230913
  105. VIROPEL [Concomitant]
     Indication: Product used for unknown indication
     Dosage: FREQUENCY TEXT: DAILY
     Route: 048
     Dates: start: 20240916, end: 20240919
  106. Elo mel isoton [Concomitant]
     Indication: Fluid intake reduced
     Dosage: FREQUENCY TEXT: 1-0-0
     Route: 042
     Dates: start: 20230831, end: 20230914
  107. Elo mel isoton [Concomitant]
     Indication: Fluid intake reduced
     Dosage: FREQUENCY TEXT: 1-1-1
     Route: 042
     Dates: start: 20230711, end: 20230717
  108. Elo mel isoton [Concomitant]
     Indication: Fluid intake reduced
     Dosage: FREQUENCY TEXT: 0-1-0-1
     Route: 042
     Dates: start: 20231127, end: 20231210
  109. Elo mel isoton [Concomitant]
     Indication: Fluid intake reduced
     Dosage: FREQUENCY TEXT: 0-1-0-1
     Route: 042
     Dates: start: 20231211, end: 20231221
  110. MORPHINE [Concomitant]
     Active Substance: MORPHINE
     Indication: Product used for unknown indication
     Dosage: TIME INTERVAL: AS NECESSARY: FREQUENCY OF APPLICATION: AS NEEDED
     Route: 058
     Dates: start: 20240917, end: 20240920

REACTIONS (79)
  - Terminal state [Fatal]
  - Night sweats [Unknown]
  - Fall [Unknown]
  - General physical health deterioration [Unknown]
  - Aortic arteriosclerosis [Unknown]
  - Abdominal pain upper [Unknown]
  - Thrombocytopenia [Recovered/Resolved]
  - Anaemia [Recovered/Resolved]
  - Anaemia [Recovered/Resolved]
  - Neutropenia [Recovered/Resolved]
  - Anaemia [Recovered/Resolved]
  - Pneumonia [Recovered/Resolved]
  - Lung infiltration [Unknown]
  - Thrombocytopenia [Recovered/Resolved]
  - Neutropenia [Recovered/Resolved]
  - Thrombocytopenia [Recovered/Resolved]
  - Skull fracture [Recovered/Resolved]
  - Anaemia [Recovered/Resolved]
  - Infection [Recovered/Resolved]
  - Neutropenia [Recovered/Resolved]
  - Anaemia [Recovered/Resolved]
  - Thrombocytopenia [Recovered/Resolved]
  - Neutropenia [Recovered/Resolved]
  - Neutropenia [Recovered/Resolved]
  - Neutropenia [Recovered/Resolved]
  - Thrombocytopenia [Recovered/Resolved]
  - Thrombocytopenia [Recovered/Resolved]
  - Thrombocytopenia [Recovered/Resolved]
  - Anaemia [Recovered/Resolved]
  - Anaemia [Recovered/Resolved]
  - Anaemia [Recovered/Resolved]
  - Thrombocytopenia [Recovered/Resolved]
  - Neutropenia [Recovered/Resolved]
  - Anaemia [Recovered/Resolved]
  - Thrombocytopenia [Recovered/Resolved]
  - Anaemia [Recovered/Resolved]
  - Anaemia [Recovered/Resolved]
  - Neutropenia [Recovered/Resolved]
  - Febrile neutropenia [Recovered/Resolved]
  - Leukopenia [Recovered/Resolved]
  - Leukopenia [Recovered/Resolved]
  - Anaemia [Recovered/Resolved]
  - Anaemia [Recovered/Resolved]
  - Leukopenia [Recovered/Resolved]
  - Anaemia [Recovered/Resolved]
  - Anaemia [Recovered/Resolved]
  - Leukopenia [Recovered/Resolved]
  - Leukopenia [Recovered/Resolved]
  - Leukopenia [Recovered/Resolved]
  - Anaemia [Recovered/Resolved]
  - Transaminases increased [Recovered/Resolved]
  - Anaemia [Recovered/Resolved]
  - Anaemia [Recovered/Resolved]
  - Anaemia [Recovered/Resolved]
  - Anaemia [Recovered/Resolved]
  - Pneumonitis [Unknown]
  - Thrombocytopenia [Recovered/Resolved]
  - Thrombocytopenia [Recovered/Resolved]
  - Thrombocytopenia [Recovered/Resolved]
  - Infection [Recovered/Resolved]
  - Anaemia [Recovered/Resolved]
  - Thrombocytopenia [Recovered/Resolved]
  - Anaemia [Recovered/Resolved]
  - Pleural effusion [Fatal]
  - Femur fracture [Unknown]
  - Femur fracture [Recovered/Resolved]
  - Leukopenia [Recovered/Resolved]
  - Anaemia [Recovered/Resolved]
  - Pyrexia [Unknown]
  - Thrombocytopenia [Recovering/Resolving]
  - Thrombocytopenia [Recovered/Resolved]
  - Anaemia [Recovered/Resolved]
  - Anaemia [Recovered/Resolved]
  - Anaemia [Recovered/Resolved]
  - Anaemia [Not Recovered/Not Resolved]
  - Pathogen resistance [Recovered/Resolved]
  - Thrombocytopenia [Not Recovered/Not Resolved]
  - Fatigue [Unknown]
  - Syncope [Unknown]

NARRATIVE: CASE EVENT DATE: 20230711
